FAERS Safety Report 25649323 (Version 1)
Quarter: 2025Q3

REPORT INFORMATION
  Report Type: Spontaneous
  Country: JP (occurrence: JP)
  Receive Date: 20250806
  Receipt Date: 20250806
  Transmission Date: 20251021
  Serious: Yes (Other)
  Sender: REGENERON
  Company Number: JP-BAYER-2025A104044

PATIENT
  Age: 8 Decade
  Sex: Female

DRUGS (1)
  1. EYLEA [Suspect]
     Active Substance: AFLIBERCEPT
     Indication: Neovascular age-related macular degeneration
     Route: 031

REACTIONS (2)
  - Subretinal fluid [Unknown]
  - Therapeutic product effect decreased [Recovering/Resolving]
